FAERS Safety Report 7008808-3 (Version None)
Quarter: 2010Q3

REPORT INFORMATION
  Report Type: 
  Country: None (occurrence: None)
  Receive Date: 20100922
  Receipt Date: 20100811
  Transmission Date: 20110219
  Serious: Yes (Death, Other)
  Sender: FDA-Public Use
  Company Number: US-BAXTER-2010BH003654

PATIENT
  Age: 76 Year
  Sex: Female
  Weight: 53 kg

DRUGS (87)
  1. HEPARIN SODIUM INJECTION [Suspect]
     Indication: AORTIC VALVE REPLACEMENT
     Route: 042
     Dates: start: 20080106, end: 20080123
  2. HEPARIN SODIUM INJECTION [Suspect]
     Indication: CORONARY ARTERY BYPASS
     Route: 042
     Dates: start: 20080106, end: 20080123
  3. HEPARIN SODIUM INJECTION [Suspect]
     Indication: DIALYSIS
     Route: 042
     Dates: start: 20080106, end: 20080123
  4. HEPARIN SODIUM INJECTION [Suspect]
     Indication: CARDIOPULMONARY BYPASS
     Route: 042
     Dates: start: 20080106, end: 20080123
  5. HEPARIN SODIUM INJECTION [Suspect]
     Indication: PROPHYLAXIS
     Route: 042
     Dates: start: 20080106, end: 20080123
  6. HEPARIN SODIUM INJECTION [Suspect]
     Route: 058
     Dates: start: 20080106, end: 20080123
  7. HEPARIN SODIUM INJECTION [Suspect]
     Route: 058
     Dates: start: 20080106, end: 20080123
  8. HEPARIN SODIUM INJECTION [Suspect]
     Route: 058
     Dates: start: 20080106, end: 20080123
  9. HEPARIN SODIUM INJECTION [Suspect]
     Route: 058
     Dates: start: 20080106, end: 20080123
  10. HEPARIN SODIUM INJECTION [Suspect]
     Route: 058
     Dates: start: 20080106, end: 20080123
  11. HEPARIN SODIUM INJECTION [Suspect]
     Route: 065
     Dates: start: 20080201
  12. HEPARIN SODIUM INJECTION [Suspect]
     Route: 065
     Dates: start: 20080201
  13. HEPARIN SODIUM INJECTION [Suspect]
     Route: 065
     Dates: start: 20080201
  14. HEPARIN SODIUM INJECTION [Suspect]
     Route: 065
     Dates: start: 20080201
  15. HEPARIN SODIUM INJECTION [Suspect]
     Route: 065
     Dates: start: 20080201
  16. HEPARIN SODIUM INJECTION [Suspect]
     Route: 042
     Dates: start: 20080109, end: 20080109
  17. HEPARIN SODIUM INJECTION [Suspect]
     Route: 042
     Dates: start: 20080109, end: 20080109
  18. HEPARIN SODIUM INJECTION [Suspect]
     Route: 042
     Dates: start: 20080109, end: 20080109
  19. HEPARIN SODIUM INJECTION [Suspect]
     Route: 042
     Dates: start: 20080109, end: 20080109
  20. HEPARIN SODIUM INJECTION [Suspect]
     Route: 042
     Dates: start: 20080109, end: 20080109
  21. HEPARIN SODIUM INJECTION [Suspect]
     Route: 042
     Dates: start: 20080109, end: 20080109
  22. HEPARIN SODIUM INJECTION [Suspect]
     Route: 042
     Dates: start: 20080109, end: 20080109
  23. HEPARIN SODIUM INJECTION [Suspect]
     Route: 042
     Dates: start: 20080109, end: 20080109
  24. HEPARIN SODIUM INJECTION [Suspect]
     Route: 042
     Dates: start: 20080109, end: 20080109
  25. HEPARIN SODIUM INJECTION [Suspect]
     Route: 042
     Dates: start: 20080109, end: 20080109
  26. HEPARIN SODIUM INJECTION [Suspect]
     Route: 042
     Dates: start: 20080109, end: 20080109
  27. HEPARIN SODIUM INJECTION [Suspect]
     Route: 042
     Dates: start: 20080109, end: 20080109
  28. HEPARIN SODIUM INJECTION [Suspect]
     Route: 042
     Dates: start: 20080109, end: 20080109
  29. HEPARIN SODIUM INJECTION [Suspect]
     Route: 042
     Dates: start: 20080109, end: 20080109
  30. HEPARIN SODIUM INJECTION [Suspect]
     Route: 042
     Dates: start: 20080109, end: 20080109
  31. HEPARIN SODIUM INJECTION [Suspect]
     Route: 042
     Dates: start: 20080109, end: 20080109
  32. HEPARIN SODIUM INJECTION [Suspect]
     Route: 042
     Dates: start: 20080109, end: 20080109
  33. HEPARIN SODIUM INJECTION [Suspect]
     Route: 042
     Dates: start: 20080109, end: 20080109
  34. HEPARIN SODIUM INJECTION [Suspect]
     Route: 042
     Dates: start: 20080109, end: 20080109
  35. HEPARIN SODIUM INJECTION [Suspect]
     Route: 042
     Dates: start: 20080109, end: 20080109
  36. HEPARIN SODIUM INJECTION [Suspect]
     Route: 042
     Dates: start: 20080109, end: 20080109
  37. HEPARIN SODIUM INJECTION [Suspect]
     Route: 042
     Dates: start: 20080109, end: 20080109
  38. HEPARIN SODIUM INJECTION [Suspect]
     Route: 042
     Dates: start: 20080109, end: 20080109
  39. HEPARIN SODIUM INJECTION [Suspect]
     Route: 042
     Dates: start: 20080109, end: 20080109
  40. HEPARIN SODIUM INJECTION [Suspect]
     Route: 042
     Dates: start: 20080109, end: 20080109
  41. HEPARIN SODIUM INJECTION [Suspect]
     Route: 042
     Dates: start: 20080109, end: 20080109
  42. HEPARIN SODIUM INJECTION [Suspect]
     Route: 042
     Dates: start: 20080109, end: 20080109
  43. HEPARIN SODIUM INJECTION [Suspect]
     Route: 042
     Dates: start: 20080109, end: 20080109
  44. HEPARIN SODIUM INJECTION [Suspect]
     Route: 042
     Dates: start: 20080109, end: 20080109
  45. HEPARIN SODIUM INJECTION [Suspect]
     Route: 042
     Dates: start: 20080109, end: 20080109
  46. HEPARIN SODIUM INJECTION [Suspect]
     Route: 042
     Dates: start: 20080109, end: 20080109
  47. HEPARIN SODIUM INJECTION [Suspect]
     Route: 042
     Dates: start: 20080109, end: 20080109
  48. HEPARIN SODIUM INJECTION [Suspect]
     Route: 042
     Dates: start: 20080109, end: 20080109
  49. HEPARIN SODIUM INJECTION [Suspect]
     Route: 042
     Dates: start: 20080109, end: 20080109
  50. HEPARIN SODIUM INJECTION [Suspect]
     Route: 042
     Dates: start: 20080109, end: 20080109
  51. HEPARIN SODIUM INJECTION [Suspect]
     Route: 058
     Dates: start: 20080207, end: 20080207
  52. HEPARIN SODIUM INJECTION [Suspect]
     Route: 058
     Dates: start: 20080207, end: 20080207
  53. HEPARIN SODIUM INJECTION [Suspect]
     Route: 058
     Dates: start: 20080207, end: 20080207
  54. HEPARIN SODIUM INJECTION [Suspect]
     Route: 058
     Dates: start: 20080207, end: 20080207
  55. HEPARIN SODIUM INJECTION [Suspect]
     Route: 058
     Dates: start: 20080207, end: 20080207
  56. HEPARIN SODIUM INJECTION [Suspect]
     Route: 040
     Dates: start: 20080210, end: 20080210
  57. HEPARIN SODIUM INJECTION [Suspect]
     Route: 040
     Dates: start: 20080210, end: 20080210
  58. HEPARIN SODIUM INJECTION [Suspect]
     Route: 040
     Dates: start: 20080210, end: 20080210
  59. HEPARIN SODIUM INJECTION [Suspect]
     Route: 040
     Dates: start: 20080210, end: 20080210
  60. HEPARIN SODIUM INJECTION [Suspect]
     Route: 040
     Dates: start: 20080210, end: 20080210
  61. HEPARIN SODIUM INJECTION [Suspect]
     Route: 040
     Dates: start: 20080210, end: 20080210
  62. HEPARIN SODIUM INJECTION [Suspect]
     Route: 040
     Dates: start: 20080210, end: 20080210
  63. HEPARIN SODIUM INJECTION [Suspect]
     Route: 040
     Dates: start: 20080210, end: 20080210
  64. HEPARIN SODIUM INJECTION [Suspect]
     Route: 040
     Dates: start: 20080210, end: 20080210
  65. HEPARIN SODIUM INJECTION [Suspect]
     Route: 040
     Dates: start: 20080210, end: 20080210
  66. TYLENOL [Concomitant]
     Indication: PRODUCT USED FOR UNKNOWN INDICATION
     Route: 065
  67. BENADRYL ^WARNER-LAMBERT^               /USA/ [Concomitant]
     Indication: PRODUCT USED FOR UNKNOWN INDICATION
     Route: 065
  68. MULTI-VITAMINS [Concomitant]
     Indication: PRODUCT USED FOR UNKNOWN INDICATION
     Route: 065
  69. ZOLOFT [Concomitant]
     Indication: PRODUCT USED FOR UNKNOWN INDICATION
     Route: 065
  70. VITAMIN B [Concomitant]
     Indication: PRODUCT USED FOR UNKNOWN INDICATION
     Route: 065
  71. SODIUM NITROPRUSSIDE [Concomitant]
     Indication: PRODUCT USED FOR UNKNOWN INDICATION
     Route: 065
  72. MILRINONE [Concomitant]
     Indication: PRODUCT USED FOR UNKNOWN INDICATION
     Route: 065
  73. EPINEPHRINE [Concomitant]
     Indication: PRODUCT USED FOR UNKNOWN INDICATION
     Route: 065
  74. AMINOCAPROIC ACID [Concomitant]
     Indication: PRODUCT USED FOR UNKNOWN INDICATION
     Route: 065
  75. CEFAZOLIN [Concomitant]
     Indication: PRODUCT USED FOR UNKNOWN INDICATION
     Route: 065
  76. ALBUTEIN [Concomitant]
     Indication: PRODUCT USED FOR UNKNOWN INDICATION
     Route: 065
  77. PANTOPRAZOLE [Concomitant]
     Indication: PRODUCT USED FOR UNKNOWN INDICATION
     Route: 065
  78. METOPROLOL TARTRATE [Concomitant]
     Indication: PRODUCT USED FOR UNKNOWN INDICATION
     Route: 065
  79. NITROGLYCERIN [Concomitant]
     Indication: PRODUCT USED FOR UNKNOWN INDICATION
     Route: 061
  80. SIMVASTATIN [Concomitant]
     Indication: PRODUCT USED FOR UNKNOWN INDICATION
     Route: 065
  81. MUPIROCIN [Concomitant]
     Indication: PRODUCT USED FOR UNKNOWN INDICATION
     Route: 065
  82. CHLORHEXIDINE GLUCONATE [Concomitant]
     Indication: PRODUCT USED FOR UNKNOWN INDICATION
     Route: 065
  83. SYNTHROID [Concomitant]
     Indication: PRODUCT USED FOR UNKNOWN INDICATION
     Route: 065
  84. ACETYLSALICYLIC ACID [Concomitant]
     Indication: PRODUCT USED FOR UNKNOWN INDICATION
     Route: 048
  85. LABETALOL HCL [Concomitant]
     Indication: HYPERTENSION
     Route: 042
  86. CLONIDINE [Concomitant]
     Indication: PRODUCT USED FOR UNKNOWN INDICATION
     Route: 042
  87. DOPAMINE HCL [Concomitant]
     Indication: HYPOTENSION
     Route: 042

REACTIONS (15)
  - ATRIAL FIBRILLATION [None]
  - CEREBROVASCULAR ACCIDENT [None]
  - DEHYDRATION [None]
  - DIARRHOEA [None]
  - HAEMOPTYSIS [None]
  - HEADACHE [None]
  - HYPOTENSION [None]
  - NAUSEA [None]
  - PHARYNGEAL OEDEMA [None]
  - PLEURAL EFFUSION [None]
  - PRURITUS [None]
  - RENAL FAILURE ACUTE [None]
  - RESPIRATORY FAILURE [None]
  - SKIN BURNING SENSATION [None]
  - THROMBOCYTOPENIA [None]
